FAERS Safety Report 8912511 (Version 3)
Quarter: 2013Q2

REPORT INFORMATION
  Report Type: Spontaneous
  Country: US (occurrence: US)
  Receive Date: 20121116
  Receipt Date: 20130419
  Transmission Date: 20140414
  Serious: No
  Sender: FDA-Public Use
  Company Number: US-PFIZER INC-2012285828

PATIENT
  Age: 78 Year
  Sex: Female

DRUGS (12)
  1. LIPITOR [Suspect]
     Dosage: UNK
  2. NORVASC [Suspect]
  3. EPINEPHRINE [Suspect]
     Dosage: UNK
  4. LISINOPRIL [Suspect]
     Dosage: UNK
  5. PREVNAR [Suspect]
     Dosage: UNK
  6. ENALAPRIL MALEATE [Suspect]
     Dosage: UNK
  7. CODEINE [Suspect]
     Dosage: UNK
  8. ZOCOR [Suspect]
     Dosage: UNK
  9. ZETIA [Suspect]
     Dosage: UNK
  10. COZAAR [Suspect]
     Dosage: UNK
  11. VICODIN [Suspect]
     Dosage: UNK
  12. HIDROLASE [Suspect]
     Dosage: UNK

REACTIONS (5)
  - Drug hypersensitivity [Unknown]
  - Fatigue [Unknown]
  - Myalgia [Unknown]
  - Abdominal pain [Unknown]
  - Nausea [Unknown]
